FAERS Safety Report 16661644 (Version 2)
Quarter: 2020Q3

REPORT INFORMATION
  Report Type: Report from Study
  Country: CA (occurrence: CA)
  Receive Date: 20190802
  Receipt Date: 20200804
  Transmission Date: 20201102
  Serious: Yes (Hospitalization)
  Sender: FDA-Public Use
  Company Number: CA-ACTELION-A-US2019-193689

PATIENT
  Age: 76 Year
  Sex: Male
  Weight: 34.92 kg

DRUGS (14)
  1. ESOMEPRAZOLE. [Concomitant]
     Active Substance: ESOMEPRAZOLE MAGNESIUM
  2. DUTASTERIDE. [Concomitant]
     Active Substance: DUTASTERIDE
  3. CLONAZEPAM. [Concomitant]
     Active Substance: CLONAZEPAM
  4. BISOPROLOL [Concomitant]
     Active Substance: BISOPROLOL
  5. MIRTAZAPINE. [Concomitant]
     Active Substance: MIRTAZAPINE
  6. OPSUMIT [Suspect]
     Active Substance: MACITENTAN
     Indication: PULMONARY ARTERIAL HYPERTENSION
     Dosage: 10 MG
     Route: 048
     Dates: start: 20180124
  7. ABILIFY [Concomitant]
     Active Substance: ARIPIPRAZOLE
  8. DULOXETINE. [Concomitant]
     Active Substance: DULOXETINE
  9. TAMSULOSIN [Concomitant]
     Active Substance: TAMSULOSIN
  10. ADCIRCA [Concomitant]
     Active Substance: TADALAFIL
  11. FUROSEMIDE. [Concomitant]
     Active Substance: FUROSEMIDE
  12. HYDROMORPHONE [Concomitant]
     Active Substance: HYDROMORPHONE
  13. ATORVASTATIN [Concomitant]
     Active Substance: ATORVASTATIN
  14. SPIRONOLACTONE. [Concomitant]
     Active Substance: SPIRONOLACTONE

REACTIONS (3)
  - Tooth fracture [Unknown]
  - Device failure [Unknown]
  - Pneumonia [Unknown]

NARRATIVE: CASE EVENT DATE: 20190722
